FAERS Safety Report 7330445-1 (Version None)
Quarter: 2011Q1

REPORT INFORMATION
  Report Type: 
  Country: None (occurrence: None)
  Receive Date: 20110304
  Receipt Date: 20110222
  Transmission Date: 20110831
  Serious: No
  Sender: FDA-Public Use
  Company Number: US-BIOGENIDEC-2011BI006948

PATIENT
  Sex: Male

DRUGS (2)
  1. TYSABRI [Suspect]
     Indication: MULTIPLE SCLEROSIS
     Route: 042
     Dates: start: 20080301, end: 20100101
  2. TYSABRI [Suspect]
     Route: 042
     Dates: start: 20100101

REACTIONS (3)
  - TRIGEMINAL NEURALGIA [None]
  - MEMORY IMPAIRMENT [None]
  - FATIGUE [None]
